FAERS Safety Report 4961028-6 (Version None)
Quarter: 2006Q1

REPORT INFORMATION
  Report Type: 
  Country: None (occurrence: None)
  Receive Date: 20060328
  Receipt Date: 20060316
  Transmission Date: 20060701
  Serious: Yes (Hospitalization, Other)
  Sender: FDA-Public Use
  Company Number: HQWYE688524JUN05

PATIENT
  Age: 29 Year
  Sex: Male

DRUGS (4)
  1. RAPAMUNE [Suspect]
     Indication: PROPHYLAXIS AGAINST TRANSPLANT REJECTION
     Dosage: 15 MG 1X PER 1 DAY, ORAL
     Route: 048
     Dates: start: 20041107
  2. ZENAPAX [Concomitant]
  3. TACROLIMUS (TACROLIMUS) [Concomitant]
  4. CORTICOSTEROID NOS (CORTICOSTEROID NOS) [Concomitant]

REACTIONS (5)
  - BLOOD CREATINE INCREASED [None]
  - DIABETIC COMPLICATION [None]
  - HYPERGLYCAEMIA [None]
  - HYPOVOLAEMIA [None]
  - IMMUNOSUPPRESSANT DRUG LEVEL INCREASED [None]
